FAERS Safety Report 19359682 (Version 1)
Quarter: 2021Q2

REPORT INFORMATION
  Report Type: Spontaneous
  Country: GB (occurrence: GB)
  Receive Date: 20210602
  Receipt Date: 20210602
  Transmission Date: 20210717
  Serious: Yes (Other)
  Sender: FDA-Public Use
  Company Number: GB-MYLANLABS-2021M1031404

PATIENT
  Age: 77 Year
  Sex: Female
  Weight: 73 kg

DRUGS (7)
  1. SALBUTAMOL [Concomitant]
     Active Substance: ALBUTEROL
     Dosage: 2 DOSAGE FORM, PRN
     Dates: start: 20170918
  2. AMLODIPINE [Suspect]
     Active Substance: AMLODIPINE BESYLATE
     Indication: PRODUCT USED FOR UNKNOWN INDICATION
     Dosage: 5 MILLIGRAM, QD
     Dates: start: 20201002
  3. SALMETEROL/FLUTICASONPROPIONAAT [Concomitant]
     Active Substance: FLUTICASONE PROPIONATE\SALMETEROL XINAFOATE
     Dosage: 2 DOSAGE FORM, BID
     Route: 055
     Dates: start: 20190304
  4. BRALTUS [Concomitant]
     Active Substance: TIOTROPIUM BROMIDE
     Dosage: 1 DOSAGE FORM, QD
     Route: 055
     Dates: start: 20180320
  5. CANDESARTAN. [Concomitant]
     Active Substance: CANDESARTAN
     Dosage: 1 DOSAGE FORM, QD
     Dates: start: 20210517
  6. ERYTHROMYCIN. [Concomitant]
     Active Substance: ERYTHROMYCIN
     Dosage: 1 DOSAGE FORM, QID
     Dates: start: 20210427, end: 20210504
  7. EZETIMIBE. [Concomitant]
     Active Substance: EZETIMIBE
     Dosage: 1 DOSAGE FORM, QD
     Dates: start: 20191101

REACTIONS (1)
  - Joint swelling [Unknown]

NARRATIVE: CASE EVENT DATE: 20210524
